FAERS Safety Report 7230666-2 (Version None)
Quarter: 2011Q1

REPORT INFORMATION
  Report Type: 
  Country: None (occurrence: None)
  Receive Date: 20110118
  Receipt Date: 20110107
  Transmission Date: 20110831
  Serious: Yes (Hospitalization, Other)
  Sender: FDA-Public Use
  Company Number: US-US-EMD SERONO, INC.-7035258

PATIENT
  Sex: Female

DRUGS (4)
  1. LYRICA [Concomitant]
  2. REBIF [Suspect]
     Indication: MULTIPLE SCLEROSIS
     Route: 058
     Dates: start: 20081105, end: 20101001
  3. UNSPECIFIED MEDICATION [Concomitant]
  4. ZOLOFT [Concomitant]

REACTIONS (8)
  - SOMNOLENCE [None]
  - DYSPNOEA [None]
  - VISUAL FIELD DEFECT [None]
  - FATIGUE [None]
  - BURNING SENSATION [None]
  - MEMORY IMPAIRMENT [None]
  - URINARY INCONTINENCE [None]
  - MOTOR DYSFUNCTION [None]
